FAERS Safety Report 5422320-4 (Version None)
Quarter: 2007Q3

REPORT INFORMATION
  Report Type: 
  Country: None (occurrence: None)
  Receive Date: 20070820
  Receipt Date: 20070806
  Transmission Date: 20080115
  Serious: Yes (Hospitalization)
  Sender: FDA-Public Use
  Company Number: CIP07001514

PATIENT
  Age: 77 Year
  Sex: Female
  Weight: 73 kg

DRUGS (15)
  1. OPTINATE SEPTIMUM             (RISEDRONATE SODIUM) [Suspect]
     Dosage: 35 MG ONCE WEEKLY, ORAL
     Route: 048
     Dates: start: 20070401
  2. COZAAR [Concomitant]
  3. FUROSEMIDE [Concomitant]
  4. WARFARIN SODIUM [Concomitant]
  5. NORMORIX            (HYDROCHLOROTHIAZIDE, AMILORIDE HYDROCHLORIDE) [Concomitant]
  6. SPECICOR     (METOPROLOL TARTRATE) [Concomitant]
  7. CALCIUM W/VIT.D3         (COLECALCIFEROL, CALCIUM) [Concomitant]
  8. PROTAPHANE            (INSULIN HUMAN INJECTION, ISOPHANE) [Concomitant]
  9. WARFARIN SODIUM [Concomitant]
  10. ORMOX              (ISOSORBIDE MONONITRATE) [Concomitant]
  11. SIMVASTATIN [Concomitant]
  12. ACETAMINOPHEN [Concomitant]
  13. KALCIPOS-D           (CALCIUM CARBONATE, COLECALCIFEROL) [Concomitant]
  14. IMOVANE           (ZOPICLONE) [Concomitant]
  15. SPIRESIS                    (SPIRONOLACTONE) [Concomitant]

REACTIONS (8)
  - ANKLE FRACTURE [None]
  - CONDITION AGGRAVATED [None]
  - DYSCHEZIA [None]
  - DYSSTASIA [None]
  - FALL [None]
  - INCONTINENCE [None]
  - MUSCULAR WEAKNESS [None]
  - PARALYSIS [None]
